FAERS Safety Report 6862100-6 (Version None)
Quarter: 2010Q3

REPORT INFORMATION
  Report Type: 
  Country: None (occurrence: None)
  Receive Date: 20100721
  Receipt Date: 20100706
  Transmission Date: 20110219
  Serious: Yes (Other)
  Sender: FDA-Public Use
  Company Number: US-ELI_LILLY_AND_COMPANY-US201007001803

PATIENT
  Sex: Female

DRUGS (22)
  1. FORTEO [Suspect]
     Indication: OSTEOPOROSIS
     Dosage: 20 UG, DAILY (1/D)
  2. OXYCODONE HCL [Concomitant]
     Dosage: 15 MG, 4/D
  3. CELEBREX [Concomitant]
     Dosage: 200 MG, 2/D
  4. BOTOX [Concomitant]
  5. ASPIRIN [Concomitant]
     Dosage: UNK, 2/D
  6. SINEMET [Concomitant]
     Dosage: 100 MG, 4/D
  7. LORAZEPAM [Concomitant]
     Dosage: 0.5 MG, 3/D
  8. AZILECT [Concomitant]
     Dosage: 0.5 MG, DAILY (1/D)
  9. CALCIUM [Concomitant]
     Dosage: 600 MG, 2/D
  10. VITAMIN D [Concomitant]
     Dosage: 400 MG, DAILY (1/D)
  11. POTASSIUM CHLORIDE [Concomitant]
     Dosage: 595 MG, DAILY (1/D)
  12. NEXIUM [Concomitant]
     Dosage: 40 MG, 2/D
  13. POLYETHYLENE GLYCOL [Concomitant]
     Dosage: 17 G, DAILY (1/D)
  14. AMITIZA [Concomitant]
     Dosage: 24 MG, 2/D
  15. COLACE [Concomitant]
     Dosage: 100 MG, DAILY (1/D)
  16. MILK OF MAGNESIUM [Concomitant]
     Dosage: UNK, DAILY (1/D)
  17. DULCOLAX [Concomitant]
     Dosage: UNK, AS NEEDED
  18. SPIRIVA [Concomitant]
  19. LEVOTHYROXINE SODIUM [Concomitant]
     Dosage: 88 MG, DAILY (1/D)
  20. TEMAZEPAM [Concomitant]
     Dosage: 30 MG, DAILY (1/D)
  21. LEXAPRO [Concomitant]
     Dosage: 10 MG, DAILY (1/D)
  22. VITAMIN B-12 [Concomitant]
     Dosage: UNK, MONTHLY (1/M)

REACTIONS (3)
  - CONSTIPATION [None]
  - HIP FRACTURE [None]
  - PAIN [None]
